FAERS Safety Report 6225995-5 (Version None)
Quarter: 2009Q2

REPORT INFORMATION
  Report Type: 
  Country: None (occurrence: None)
  Receive Date: 20090612
  Receipt Date: 20090601
  Transmission Date: 20091009
  Serious: Yes (Other)
  Sender: FDA-Public Use
  Company Number: SE-PFIZER INC-2008068628

PATIENT
  Age: 52 Year

DRUGS (5)
  1. SOMATROPIN [Suspect]
     Indication: HYPOPITUITARISM
     Dosage: .3 MG, 1X/DAY
     Dates: start: 19940830, end: 20080812
  2. TESTOSTERONE [Suspect]
     Indication: HYPOGONADISM
     Dosage: 50 MG, 1X/DAY
     Dates: start: 20060201, end: 20080812
  3. HYDROCORTISONE 10MG TAB [Concomitant]
     Indication: BLOOD CORTISOL DECREASED
     Dosage: 20 MG, 1X/DAY
     Dates: start: 20030401
  4. LEVOTHYROXINE SODIUM [Concomitant]
     Indication: HYPOTHYROIDISM
     Dosage: 0.15 MG, 1X/DAY
     Dates: start: 20000114
  5. MECILLINAM [Concomitant]
     Dosage: 200 MG, 2X/DAY DURING 7 DAYS

REACTIONS (1)
  - PROSTATE CANCER [None]
